FAERS Safety Report 12021344 (Version 1)
Quarter: 2016Q1

REPORT INFORMATION
  Report Type: Spontaneous
  Country: US (occurrence: US)
  Receive Date: 20160206
  Receipt Date: 20160206
  Transmission Date: 20160526
  Serious: Yes (Death, Other)
  Sender: FDA-Public Use
  Company Number: US-NORTHSTAR HEALTHCARE HOLDINGS-US-2016NSR000282

PATIENT
  Age: 71 Year
  Sex: Male

DRUGS (1)
  1. TRAMADOL HYDROCHLORIDE. [Suspect]
     Active Substance: TRAMADOL HYDROCHLORIDE
     Indication: PRODUCT USED FOR UNKNOWN INDICATION
     Dosage: UNK DF, SINGLE
     Route: 048

REACTIONS (8)
  - Seizure [Recovered/Resolved]
  - Overdose [Fatal]
  - Completed suicide [Fatal]
  - Intentional self-injury [Unknown]
  - Oxygen saturation decreased [Unknown]
  - Hypotension [Unknown]
  - Acidosis [Unknown]
  - Toxicity to various agents [Fatal]

NARRATIVE: CASE EVENT DATE: 2014
